FAERS Safety Report 7193087-7 (Version None)
Quarter: 2010Q4

REPORT INFORMATION
  Report Type: 
  Country: None (occurrence: None)
  Receive Date: 20101221
  Receipt Date: 20101221
  Transmission Date: 20110411
  Serious: Yes (Life-Threatening, Other)
  Sender: FDA-Public Use
  Company Number: None

PATIENT
  Age: 68 Year
  Sex: Female
  Weight: 61.2356 kg

DRUGS (2)
  1. PROLIA [Suspect]
     Indication: OSTEOPOROSIS
     Dosage: 60 ONCE EVERY 6 MON. SQ
     Route: 058
     Dates: start: 20100826, end: 20101231
  2. PROLIA [Suspect]
     Indication: RHEUMATOID ARTHRITIS
     Dosage: 60 ONCE EVERY 6 MON. SQ
     Route: 058
     Dates: start: 20100826, end: 20101231

REACTIONS (18)
  - BACK PAIN [None]
  - BLOOD CHOLESTEROL INCREASED [None]
  - CHILLS [None]
  - CONDITION AGGRAVATED [None]
  - CONSTIPATION [None]
  - DRY SKIN [None]
  - DYSPNOEA [None]
  - DYSURIA [None]
  - ERUCTATION [None]
  - FEELING ABNORMAL [None]
  - HAIR TEXTURE ABNORMAL [None]
  - MUSCLE SPASMS [None]
  - MYALGIA [None]
  - PAIN IN EXTREMITY [None]
  - PAIN IN JAW [None]
  - PRURITUS [None]
  - RHEUMATOID ARTHRITIS [None]
  - SKIN FISSURES [None]
